FAERS Safety Report 15352583 (Version 1)
Quarter: 2018Q3

REPORT INFORMATION
  Report Type: Spontaneous
  Country: CN (occurrence: CN)
  Receive Date: 20180905
  Receipt Date: 20180905
  Transmission Date: 20181010
  Serious: Yes (Other)
  Sender: FDA-Public Use
  Company Number: CN-BRACCO-2018CN04546

PATIENT
  Age: 69 Year
  Sex: Male

DRUGS (1)
  1. IOPAMIRO [Suspect]
     Active Substance: IOPAMIDOL
     Indication: ARTERIOGRAM CORONARY
     Dosage: UNK, SINGLE
     Dates: start: 20180608, end: 20180608

REACTIONS (5)
  - Dyskinesia [Recovering/Resolving]
  - Atrial fibrillation [Recovering/Resolving]
  - Palpitations [Recovering/Resolving]
  - Anuria [Recovering/Resolving]
  - Chest discomfort [Recovering/Resolving]

NARRATIVE: CASE EVENT DATE: 20180609
